FAERS Safety Report 11927166 (Version 1)
Quarter: 2016Q1

REPORT INFORMATION
  Report Type: Spontaneous
  Country: CA (occurrence: CA)
  Receive Date: 20160119
  Receipt Date: 20160119
  Transmission Date: 20160526
  Serious: Yes (Other)
  Sender: FDA-Public Use
  Company Number: CA-TEVA-626389ACC

PATIENT
  Age: 71 Year
  Sex: Female
  Weight: 56.3 kg

DRUGS (4)
  1. ATORVASTATIN-10 [Concomitant]
     Active Substance: ATORVASTATIN
  2. HYDROCHLOROTHIAZIDE 25MG TABLETS [Concomitant]
     Active Substance: HYDROCHLOROTHIAZIDE
  3. SYNTHROID TAB 75MCG [Concomitant]
  4. NOVO-ALENDRONATE [Suspect]
     Active Substance: ALENDRONIC ACID
     Indication: PRODUCT USED FOR UNKNOWN INDICATION
     Route: 048

REACTIONS (2)
  - Paraesthesia oral [Recovered/Resolved]
  - Glossodynia [Recovered/Resolved]
